FAERS Safety Report 24605366 (Version 2)
Quarter: 2024Q4

REPORT INFORMATION
  Report Type: Spontaneous
  Country: US (occurrence: US)
  Receive Date: 20241111
  Receipt Date: 20241215
  Transmission Date: 20250115
  Serious: No
  Sender: SANOFI AVENTIS
  Company Number: US-SA-2024SA323007

PATIENT
  Age: 58 Year
  Sex: Female
  Weight: 64.55 kg

DRUGS (1)
  1. DUPIXENT [Suspect]
     Active Substance: DUPILUMAB
     Indication: Eosinophilic oesophagitis
     Dosage: 300 MG, QW
     Route: 058

REACTIONS (3)
  - Dysphagia [Recovered/Resolved]
  - Visual impairment [Unknown]
  - Dry eye [Unknown]

NARRATIVE: CASE EVENT DATE: 20240901
